FAERS Safety Report 21246924 (Version 3)
Quarter: 2022Q4

REPORT INFORMATION
  Report Type: Report from Study
  Country: US (occurrence: US)
  Receive Date: 20220824
  Receipt Date: 20221007
  Transmission Date: 20230112
  Serious: Yes (Other)
  Sender: FDA-Public Use
  Company Number: US-GILEAD-2022-0594105

PATIENT
  Sex: Female

DRUGS (1)
  1. AZTREONAM LYSINE [Suspect]
     Active Substance: AZTREONAM LYSINE
     Indication: Cystic fibrosis
     Dosage: 75 MG, TID EVERY OTHER MONTH
     Route: 055

REACTIONS (5)
  - Haemorrhage [Unknown]
  - Pneumonia [Unknown]
  - Haemorrhage [Unknown]
  - Haemoptysis [Unknown]
  - Pyrexia [Not Recovered/Not Resolved]
